FAERS Safety Report 8523360-9 (Version None)
Quarter: 2012Q3

REPORT INFORMATION
  Report Type: 
  Country: None (occurrence: None)
  Receive Date: 20120709
  Receipt Date: 20120626
  Transmission Date: 20120928
  Serious: Yes (Hospitalization)
  Sender: FDA-Public Use
  Company Number: MPS1-1000722

PATIENT
  Age: 9 Year
  Sex: Female

DRUGS (1)
  1. ALBRAZYME (LARONIDASE) CONCENTRATE FOR SOLUTION FOR INFUSION [Suspect]
     Indication: MUCOPOLYSACCHARIDOSIS I
     Dosage: 1.16 MG/KG, QOW, INTRAVENOUS
     Route: 042
     Dates: start: 20040101

REACTIONS (2)
  - UMBILICAL HERNIA, OBSTRUCTIVE [None]
  - ABSCESS [None]
